FAERS Safety Report 11829534 (Version 4)
Quarter: 2016Q1

REPORT INFORMATION
  Report Type: Spontaneous
  Country: JP (occurrence: JP)
  Receive Date: 20151212
  Receipt Date: 20160307
  Transmission Date: 20160525
  Serious: Yes (Other)
  Sender: FDA-Public Use
  Company Number: JP-ACCORD-036153

PATIENT
  Age: 78 Year
  Sex: Male

DRUGS (13)
  1. CISPLATIN. [Suspect]
     Active Substance: CISPLATIN
     Indication: OESOPHAGEAL CARCINOMA
     Dosage: RECEIVED AS REGIMEN JCOG9907.??80% DOSE IN DAY 1 (PREOPERATIVE FP THERAPY)
     Dates: start: 20120423, end: 20120423
  2. ADELAVIN 9 [Concomitant]
     Dates: start: 20120425, end: 20120428
  3. ONEDURO [Concomitant]
     Active Substance: FENTANYL
     Dates: start: 20120422, end: 20120428
  4. FLUOROURACIL. [Suspect]
     Active Substance: FLUOROURACIL
     Indication: OESOPHAGEAL CARCINOMA
     Dosage: RECEIVED AS REGIMEN JCOG9907??SUSTAINED ADMINISTRATION ON DAYS 1-5 (PREOPERATIVE FP THERAPY)
     Dates: start: 20120423, end: 20120426
  5. SOLDEM 3A [Concomitant]
     Active Substance: CARBOHYDRATES\POTASSIUM CHLORIDE\SODIUM CHLORIDE\SODIUM LACTATE
     Dates: start: 20120422, end: 20120424
  6. PROEMEND [Concomitant]
     Active Substance: FOSAPREPITANT
     Dates: start: 20120423, end: 20120423
  7. GASTER [Concomitant]
     Active Substance: FAMOTIDINE
     Dates: start: 20120425, end: 20120428
  8. METOPROLOL TARTRATE. [Concomitant]
     Active Substance: METOPROLOL TARTRATE
     Dates: start: 20120425, end: 20120428
  9. VITAMEDIN [Concomitant]
     Active Substance: CYANOCOBALAMIN\PYRIDOXINE HYDROCHLORIDE\THIAMINE
     Dates: start: 20120422, end: 20120424
  10. LASIX [Concomitant]
     Active Substance: FUROSEMIDE
     Dates: start: 20120423, end: 20120423
  11. FRANDOL [Concomitant]
     Active Substance: ISOSORBIDE DINITRATE
     Dates: start: 20120422, end: 20120428
  12. GRANISETRON [Concomitant]
     Active Substance: GRANISETRON
     Dates: start: 20120423, end: 20120423
  13. DEXAMETHASONE. [Concomitant]
     Active Substance: DEXAMETHASONE
     Dates: start: 20120423, end: 20120426

REACTIONS (1)
  - Bradycardia [Recovered/Resolved]

NARRATIVE: CASE EVENT DATE: 20120423
